FAERS Safety Report 25779858 (Version 1)
Quarter: 2025Q3

REPORT INFORMATION
  Report Type: Spontaneous
  Country: EU (occurrence: EU)
  Receive Date: 20250909
  Receipt Date: 20250909
  Transmission Date: 20251020
  Serious: Yes (Death, Life-Threatening, Hospitalization, Disabling, Other)
  Sender: AMGEN
  Company Number: EU-AMGEN-FRASP2025176643

PATIENT

DRUGS (2)
  1. ADALIMUMAB [Suspect]
     Active Substance: ADALIMUMAB
     Indication: Psoriatic arthropathy
     Route: 058
  2. INFLIXIMAB [Concomitant]
     Active Substance: INFLIXIMAB
     Indication: Tuberculosis
     Route: 040

REACTIONS (23)
  - Coma [Unknown]
  - Pneumonia [Fatal]
  - Disability [Unknown]
  - Intensive care [Unknown]
  - Hydrocephalus [Unknown]
  - Intracranial pressure increased [Unknown]
  - Tuberculoma [Unknown]
  - Hepatotoxicity [Unknown]
  - Immunodeficiency [Unknown]
  - Syringomyelia [Unknown]
  - Seizure [Unknown]
  - Paraplegia [Unknown]
  - Cerebellar syndrome [Unknown]
  - Tuberculosis [Unknown]
  - Cognitive disorder [Unknown]
  - HIV test positive [Unknown]
  - Cerebral disorder [Unknown]
  - Spinal disorder [Unknown]
  - Meningeal disorder [Unknown]
  - Cranial nerve disorder [Unknown]
  - Staphylococcal infection [Unknown]
  - Headache [Unknown]
  - Vasculitis [Unknown]
